FAERS Safety Report 6709668-8 (Version None)
Quarter: 2010Q2

REPORT INFORMATION
  Report Type: 
  Country: None (occurrence: None)
  Receive Date: 20100503
  Receipt Date: 20100503
  Transmission Date: 20101027
  Serious: Yes (Other)
  Sender: FDA-Public Use
  Company Number: None

PATIENT
  Age: 9 Year
  Sex: Female
  Weight: 34.0198 kg

DRUGS (4)
  1. CHILDRENS TYLENOL MULTI-SYMPTOM CHILDRENS SUSPENSION MCNEIL [Suspect]
     Indication: HEADACHE
     Dosage: 2 TSP EVERY 12 HRS PRN PO
     Route: 048
     Dates: start: 20100310, end: 20100501
  2. CHILDRENS TYLENOL MULTI-SYMPTOM CHILDRENS SUSPENSION MCNEIL [Suspect]
     Indication: PYREXIA
     Dosage: 2 TSP EVERY 12 HRS PRN PO
     Route: 048
     Dates: start: 20100310, end: 20100501
  3. CHILDRENS TYLENOL MULTI-SYMPTOM CHILDRENS SUSPENSION MCNEIL [Suspect]
     Indication: VIRAL INFECTION
     Dosage: 2 TSP EVERY 12 HRS PRN PO
     Route: 048
     Dates: start: 20100310, end: 20100501
  4. CHILDREN'S MOTRIN [Suspect]
     Indication: INFECTIOUS MONONUCLEOSIS
     Dosage: 2 1/2 - 3 TSP EVERY 12 HRS PRN PO
     Route: 048
     Dates: start: 20100310, end: 20100501

REACTIONS (4)
  - ABDOMINAL PAIN [None]
  - EPSTEIN-BARR VIRUS TEST POSITIVE [None]
  - INCORRECT DOSE ADMINISTERED [None]
  - PRODUCT QUALITY ISSUE [None]
